FAERS Safety Report 7800875-X (Version None)
Quarter: 2011Q4

REPORT INFORMATION
  Report Type: 
  Country: None (occurrence: None)
  Receive Date: 20111006
  Receipt Date: 20110930
  Transmission Date: 20120403
  Serious: Yes (Hospitalization, Other)
  Sender: FDA-Public Use
  Company Number: HR-MERCK-1110USA00049

PATIENT
  Age: 83 Year
  Sex: Male

DRUGS (9)
  1. LANITOP [Concomitant]
     Route: 065
  2. REGLAN [Concomitant]
     Route: 065
  3. KETOPROFEN [Concomitant]
     Route: 054
  4. NOVOCEF [Concomitant]
     Route: 065
  5. KALINOR [Concomitant]
     Route: 048
  6. NEXIUM [Concomitant]
     Route: 065
  7. DURAGESIC-100 [Concomitant]
     Route: 065
  8. ISOPTIN [Concomitant]
     Route: 065
  9. PROSCAR [Suspect]
     Indication: BENIGN PROSTATIC HYPERPLASIA
     Route: 048
     Dates: start: 20081211

REACTIONS (9)
  - ECZEMA [None]
  - DECUBITUS ULCER [None]
  - HEARING IMPAIRED [None]
  - VISUAL IMPAIRMENT [None]
  - DEEP VEIN THROMBOSIS [None]
  - NORMOCHROMIC NORMOCYTIC ANAEMIA [None]
  - URINARY TRACT INFECTION [None]
  - CARDIAC FAILURE [None]
  - UROSEPSIS [None]
